FAERS Safety Report 22241095 (Version 1)
Quarter: 2023Q2

REPORT INFORMATION
  Report Type: Spontaneous
  Country: AT (occurrence: AT)
  Receive Date: 20230421
  Receipt Date: 20230421
  Transmission Date: 20230722
  Serious: Yes (Hospitalization, Other)
  Sender: FDA-Public Use
  Company Number: AT-GILEAD-2023-0621554

PATIENT
  Age: 30 Year
  Sex: Male

DRUGS (7)
  1. MIRTAZAPINE [Interacting]
     Active Substance: MIRTAZAPINE
     Indication: Product used for unknown indication
     Dosage: UNK
     Route: 065
  2. AMYL NITRITE [Suspect]
     Active Substance: AMYL NITRITE
     Indication: Drug abuse
     Dosage: UNK
     Route: 065
  3. TRAZODONE [Interacting]
     Active Substance: TRAZODONE HYDROCHLORIDE
     Indication: Product used for unknown indication
     Dosage: UNK
     Route: 065
     Dates: start: 201310
  4. COCAINE [Interacting]
     Active Substance: COCAINE
     Indication: Drug abuse
     Dosage: UNK
     Route: 065
  5. KETAMINE [Interacting]
     Active Substance: KETAMINE
     Indication: Drug abuse
     Dosage: UNK
     Route: 065
  6. GENVOYA [Interacting]
     Active Substance: COBICISTAT\ELVITEGRAVIR\EMTRICITABINE\TENOFOVIR ALAFENAMIDE FUMARATE
     Indication: HIV infection
     Dosage: UNK
     Route: 065
     Dates: start: 2016, end: 201904
  7. ESCITALOPRAM [Concomitant]
     Active Substance: ESCITALOPRAM OXALATE
     Dosage: UNK
     Dates: start: 201304

REACTIONS (9)
  - Drug interaction [Recovered/Resolved]
  - Chlamydial infection [Unknown]
  - Toxicity to various agents [Unknown]
  - Injection site abscess [Unknown]
  - Lymphogranuloma venereum [Unknown]
  - Gonorrhoea [Unknown]
  - Aggression [Unknown]
  - Syphilis [Unknown]
  - Drug abuse [Unknown]

NARRATIVE: CASE EVENT DATE: 20161101
